FAERS Safety Report 9115667 (Version 1)
Quarter: 2013Q1

REPORT INFORMATION
  Report Type: Spontaneous
  Country: US (occurrence: US)
  Receive Date: 20130225
  Receipt Date: 20130225
  Transmission Date: 20140127
  Serious: No
  Sender: FDA-Public Use
  Company Number: US-BRISTOL-MYERS SQUIBB COMPANY-17217902

PATIENT
  Sex: Female

DRUGS (1)
  1. KENALOG [Suspect]

REACTIONS (6)
  - Drug ineffective [Unknown]
  - Ageusia [Unknown]
  - Anosmia [Unknown]
  - Nasopharyngitis [Unknown]
  - Pyrexia [Recovered/Resolved]
  - Presyncope [Unknown]
